FAERS Safety Report 4744902-5 (Version None)
Quarter: 2005Q3

REPORT INFORMATION
  Report Type: 
  Country: None (occurrence: None)
  Receive Date: 20050815
  Receipt Date: 20050708
  Transmission Date: 20060218
  Serious: Yes (Other)
  Sender: FDA-Public Use
  Company Number: US-MERCK-0507USA01185

PATIENT
  Age: 50 Year
  Sex: Male
  Weight: 127 kg

DRUGS (1)
  1. VIOXX [Suspect]
     Indication: ARTHRITIS
     Route: 048
     Dates: start: 20030807, end: 20040301

REACTIONS (2)
  - CEREBROVASCULAR ACCIDENT [None]
  - CHEST PAIN [None]
